FAERS Safety Report 4280153-9 (Version None)
Quarter: 2004Q1

REPORT INFORMATION
  Report Type: 
  Country: None (occurrence: None)
  Receive Date: 20040126
  Receipt Date: 20040112
  Transmission Date: 20041129
  Serious: Yes (Hospitalization)
  Sender: FDA-Public Use
  Company Number: CERZ-10493

PATIENT
  Age: 81 Year
  Sex: Male
  Weight: 76 kg

DRUGS (2)
  1. CEREZYME [Suspect]
     Indication: GAUCHER'S DISEASE
     Dosage: 3400 UNITS Q2WKS IV
     Route: 042
  2. FOSAMAX [Concomitant]

REACTIONS (1)
  - INTERVERTEBRAL DISC PROTRUSION [None]
